FAERS Safety Report 11781634 (Version 1)
Quarter: 2015Q4

REPORT INFORMATION
  Report Type: Spontaneous
  Country: US (occurrence: US)
  Receive Date: 20151126
  Receipt Date: 20151126
  Transmission Date: 20160305
  Serious: Yes (Other)
  Sender: FDA-Public Use
  Company Number: US-PFIZER INC-2015393868

PATIENT
  Sex: Female

DRUGS (3)
  1. METFORMIN HCL [Suspect]
     Active Substance: METFORMIN HYDROCHLORIDE
     Dosage: UNK
  2. NOVOLOG [Suspect]
     Active Substance: INSULIN ASPART
     Dosage: UNK
  3. GLIPIZIDE. [Suspect]
     Active Substance: GLIPIZIDE
     Dosage: UNK

REACTIONS (3)
  - Asthenia [Unknown]
  - Blood glucose decreased [Unknown]
  - Dizziness [Unknown]
